FAERS Safety Report 17323921 (Version 2)
Quarter: 2020Q1

REPORT INFORMATION
  Report Type: Spontaneous
  Country: IT (occurrence: IT)
  Receive Date: 20200127
  Receipt Date: 20200204
  Transmission Date: 20200409
  Serious: Yes (Hospitalization)
  Sender: FDA-Public Use
  Company Number: IT-TEVA-2020-IT-1173159

PATIENT
  Age: 10 Year
  Sex: Female
  Weight: 31 kg

DRUGS (1)
  1. RISPERIDONE. [Suspect]
     Active Substance: RISPERIDONE
     Indication: EPILEPSY
     Dosage: 5 MG
     Route: 048
     Dates: start: 20191130, end: 20191130

REACTIONS (2)
  - Medication error [Unknown]
  - Sopor [Unknown]

NARRATIVE: CASE EVENT DATE: 20191130
